FAERS Safety Report 10165537 (Version 1)
Quarter: 2014Q2

REPORT INFORMATION
  Report Type: Spontaneous
  Country: US (occurrence: US)
  Receive Date: 20140510
  Receipt Date: 20140510
  Transmission Date: 20141212
  Serious: No
  Sender: FDA-Public Use
  Company Number: US-BRISTOL-MYERS SQUIBB COMPANY-19852821

PATIENT
  Age: 59 Year
  Sex: Female
  Weight: 93.42 kg

DRUGS (3)
  1. BYDUREON [Suspect]
     Indication: TYPE 2 DIABETES MELLITUS
     Dosage: PRESCRIPTION#285-329
     Route: 058
  2. METFORMIN [Concomitant]
  3. LEVEMIR [Concomitant]

REACTIONS (1)
  - Injection site haemorrhage [Unknown]
